FAERS Safety Report 9938029 (Version 5)
Quarter: 2014Q2

REPORT INFORMATION
  Report Type: Report from Study
  Country: US (occurrence: US)
  Receive Date: 20140303
  Receipt Date: 20140530
  Transmission Date: 20141212
  Serious: Yes (Hospitalization)
  Sender: FDA-Public Use
  Company Number: US-BIOGENIDEC-2014BI018205

PATIENT
  Age: 65 Year
  Sex: Female

DRUGS (20)
  1. TYSABRI [Suspect]
     Indication: MULTIPLE SCLEROSIS
     Route: 042
     Dates: start: 20080717, end: 20081211
  2. TYSABRI [Suspect]
     Indication: MULTIPLE SCLEROSIS
     Route: 042
     Dates: start: 20100305, end: 20101019
  3. TYSABRI [Suspect]
     Indication: MULTIPLE SCLEROSIS
     Route: 042
     Dates: start: 20101216
  4. BACLOFEN [Concomitant]
  5. LEVETIRACETAM [Concomitant]
  6. ASPIRIN [Concomitant]
  7. PROVIGIL [Concomitant]
  8. FLOMAX [Concomitant]
  9. IBUPROFEN [Concomitant]
  10. DIAZEPAM [Concomitant]
  11. GABAPENTIN [Concomitant]
  12. FORTEO [Concomitant]
  13. DOCUSATE [Concomitant]
  14. D-MANNOSE [Concomitant]
  15. VITAMIN C [Concomitant]
  16. VITAMIN D3 [Concomitant]
  17. FOLIC ACID [Concomitant]
  18. MACRODANTIN [Concomitant]
  19. CRANBERRY [Concomitant]
  20. FISH OIL [Concomitant]

REACTIONS (6)
  - Escherichia urinary tract infection [Recovered/Resolved]
  - Pulmonary sepsis [Unknown]
  - Multiple sclerosis relapse [Unknown]
  - Vaginal haemorrhage [Recovered/Resolved]
  - Drug specific antibody present [Unknown]
  - Convulsion [Recovered/Resolved]
